FAERS Safety Report 5582017-7 (Version None)
Quarter: 2007Q4

REPORT INFORMATION
  Report Type: 
  Country: None (occurrence: None)
  Receive Date: 20071130
  Receipt Date: 20070731
  Transmission Date: 20080405
  Serious: No
  Sender: FDA-Public Use
  Company Number: US200705004207

PATIENT
  Age: 49 Year
  Sex: Female

DRUGS (4)
  1. BYETTA [Suspect]
     Indication: TYPE 2 DIABETES MELLITUS
     Dosage: 5 UG, 2/D, SUBCUTANEOUS ; 10 UG, 2/D, SUBCUTANEOUS
     Route: 058
     Dates: start: 20060921, end: 20061214
  2. BYETTA [Suspect]
     Indication: TYPE 2 DIABETES MELLITUS
     Dosage: 5 UG, 2/D, SUBCUTANEOUS ; 10 UG, 2/D, SUBCUTANEOUS
     Route: 058
     Dates: start: 20061214, end: 20070521
  3. GLYBURIDE [Concomitant]
  4. PRINIVIL [Concomitant]

REACTIONS (9)
  - BLOOD CHOLESTEROL INCREASED [None]
  - BLOOD GLUCOSE DECREASED [None]
  - CONSTIPATION [None]
  - DYSPEPSIA [None]
  - FLANK PAIN [None]
  - GLYCOSYLATED HAEMOGLOBIN INCREASED [None]
  - HAEMATURIA [None]
  - NAUSEA [None]
  - NEPHROLITHIASIS [None]
